FAERS Safety Report 14494639 (Version 1)
Quarter: 2018Q1

REPORT INFORMATION
  Report Type: Spontaneous
  Country: US (occurrence: US)
  Receive Date: 20180206
  Receipt Date: 20180206
  Transmission Date: 20180509
  Serious: Yes (Death, Life-Threatening, Hospitalization, Other)
  Sender: FDA-Public Use
  Company Number: None

PATIENT
  Age: 68 Year
  Sex: Female
  Weight: 65.77 kg

DRUGS (6)
  1. METOPROLOL ER [Concomitant]
     Active Substance: METOPROLOL SUCCINATE
  2. WARFARIN [Concomitant]
     Active Substance: WARFARIN
  3. ATORVASTATIN [Concomitant]
     Active Substance: ATORVASTATIN
  4. ASA [Concomitant]
     Active Substance: ASPIRIN
  5. IMPLANTABLE CARDIOVERTER DEFIBRILLATOR [Concomitant]
  6. AMIODARONE HYDROCHLORIDE. [Suspect]
     Active Substance: AMIODARONE HYDROCHLORIDE
     Indication: ATRIAL FIBRILLATION
     Route: 048
     Dates: start: 20170202, end: 20170908

REACTIONS (20)
  - Dysgeusia [None]
  - Coordination abnormal [None]
  - Alopecia [None]
  - Heart rate decreased [None]
  - Urinary retention [None]
  - Toxicity to various agents [None]
  - Memory impairment [None]
  - Nausea [None]
  - Lethargy [None]
  - Cough [None]
  - Heart rate irregular [None]
  - Cardiac arrest [None]
  - Nervousness [None]
  - Hypertension [None]
  - Decreased appetite [None]
  - Skin exfoliation [None]
  - Nightmare [None]
  - Drug ineffective [None]
  - Tremor [None]
  - Electrocardiogram abnormal [None]

NARRATIVE: CASE EVENT DATE: 20171005
